FAERS Safety Report 12548657 (Version 1)
Quarter: 2016Q3

REPORT INFORMATION
  Report Type: Spontaneous
  Country: US (occurrence: US)
  Receive Date: 20160712
  Receipt Date: 20160712
  Transmission Date: 20161109
  Serious: No
  Sender: FDA-Public Use
  Company Number: US-TEVA-655638USA

PATIENT
  Sex: Female
  Weight: 45.4 kg

DRUGS (1)
  1. LAMOTRIGINE. [Suspect]
     Active Substance: LAMOTRIGINE
     Indication: DEPRESSION
     Route: 065
     Dates: start: 201604

REACTIONS (4)
  - Hyperhidrosis [Unknown]
  - Memory impairment [Unknown]
  - Wrong technique in product usage process [Unknown]
  - Trismus [Unknown]
